FAERS Safety Report 8044308-X (Version None)
Quarter: 2012Q1

REPORT INFORMATION
  Report Type: 
  Country: None (occurrence: None)
  Receive Date: 20120113
  Receipt Date: 20101129
  Transmission Date: 20120608
  Serious: Yes (Life-Threatening, Hospitalization, Disabling)
  Sender: FDA-Public Use
  Company Number: US-BAYER-2010-000629

PATIENT
  Sex: Female

DRUGS (1)
  1. AVELOX [Suspect]
     Indication: RESPIRATORY TRACT INFECTION
     Dosage: UNK
     Route: 048
     Dates: start: 20071020, end: 20071022

REACTIONS (4)
  - OEDEMA PERIPHERAL [None]
  - FACE OEDEMA [None]
  - THYROID DISORDER [None]
  - WEIGHT DECREASED [None]
